FAERS Safety Report 8506874 (Version 2)
Quarter: 2014Q4

REPORT INFORMATION
  Report Type: Spontaneous
  Country: US (occurrence: US)
  Receive Date: 20120412
  Receipt Date: 20141010
  Transmission Date: 20150529
  Serious: No
  Sender: FDA-Public Use
  Company Number: US-ASTRAZENECA-2012SE12932

PATIENT
  Age: 49 Year
  Sex: Female

DRUGS (19)
  1. NEXIUM [Suspect]
     Active Substance: ESOMEPRAZOLE MAGNESIUM
     Indication: GASTROOESOPHAGEAL REFLUX DISEASE
     Route: 048
  2. CITRACAL PLUS D [Concomitant]
     Indication: OSTEOPOROSIS
  3. LOTREL [Concomitant]
     Active Substance: AMLODIPINE BESYLATE\BENAZEPRIL HYDROCHLORIDE
     Indication: HYPERTENSION
  4. FERROUS GLUC [Concomitant]
     Indication: ANAEMIA
  5. TEGRETOL [Concomitant]
     Active Substance: CARBAMAZEPINE
     Indication: BIPOLAR DISORDER
  6. PROMETHAZINE [Concomitant]
     Active Substance: PROMETHAZINE\PROMETHAZINE HYDROCHLORIDE
     Indication: NAUSEA
  7. BLACK COHOSH EXTRACT [Concomitant]
     Indication: MENOPAUSE
  8. NEXIUM [Suspect]
     Active Substance: ESOMEPRAZOLE MAGNESIUM
     Indication: GASTROOESOPHAGEAL REFLUX DISEASE
     Route: 048
  9. BUPROPRION SR [Concomitant]
     Active Substance: BUPROPION
     Indication: BIPOLAR DISORDER
  10. LYRICA [Concomitant]
     Active Substance: PREGABALIN
     Indication: FIBROMYALGIA
  11. BIOTIN [Concomitant]
     Active Substance: BIOTIN
     Indication: SUPPORTIVE CARE
  12. MECLIZINE [Concomitant]
     Active Substance: MECLIZINE\MECLIZINE HYDROCHLORIDE
     Indication: VERTIGO
  13. AMBIEN [Concomitant]
     Active Substance: ZOLPIDEM TARTRATE
     Indication: BIPOLAR DISORDER
  14. DIFLUNISAL. [Concomitant]
     Active Substance: DIFLUNISAL
     Indication: RHEUMATOID ARTHRITIS
  15. URSODTAL [Concomitant]
     Indication: BILIARY CIRRHOSIS PRIMARY
  16. PREDNISOLONE. [Concomitant]
     Active Substance: PREDNISOLONE
     Indication: RHEUMATOID ARTHRITIS
  17. HYDROCODONE ACETAMINOPHEN [Concomitant]
     Active Substance: ACETAMINOPHEN\HYDROCODONE BITARTRATE
     Indication: RHEUMATOID ARTHRITIS
  18. ORENCIA [Concomitant]
     Active Substance: ABATACEPT
     Indication: RHEUMATOID ARTHRITIS
  19. HYDROXYZINE HCL [Concomitant]
     Active Substance: HYDROXYZINE HYDROCHLORIDE
     Indication: BILIARY CIRRHOSIS PRIMARY

REACTIONS (3)
  - Drug dose omission [Unknown]
  - Gastrooesophageal reflux disease [Unknown]
  - Malaise [Unknown]
